FAERS Safety Report 4768634-2 (Version None)
Quarter: 2005Q3

REPORT INFORMATION
  Report Type: 
  Country: None (occurrence: None)
  Receive Date: 20050914
  Receipt Date: 20050907
  Transmission Date: 20060218
  Serious: Yes (Death)
  Sender: FDA-Public Use
  Company Number: US-JNJFOC-20050902158

PATIENT
  Age: 22 Year
  Sex: Male

DRUGS (7)
  1. OXYBUTYNIN [Suspect]
     Indication: DRUG USE FOR UNKNOWN INDICATION
     Route: 048
  2. PHENYLETHYLAMINE [Suspect]
     Indication: DRUG USE FOR UNKNOWN INDICATION
  3. GABAPENTIN [Concomitant]
  4. LANSOPRAZOLE [Concomitant]
  5. MELATONIN [Concomitant]
  6. PAROXETINE [Concomitant]
  7. TIZANIDINE HCL [Concomitant]

REACTIONS (3)
  - CEREBRAL HAEMORRHAGE [None]
  - CONVULSION [None]
  - HYPERTHERMIA [None]
